FAERS Safety Report 6718365-4 (Version None)
Quarter: 2010Q2

REPORT INFORMATION
  Report Type: 
  Country: None (occurrence: None)
  Receive Date: 20100510
  Receipt Date: 20100426
  Transmission Date: 20101027
  Serious: Yes (Hospitalization)
  Sender: FDA-Public Use
  Company Number: GB-MYLANLABS-2010S1007107

PATIENT
  Age: 84 Year
  Sex: Male

DRUGS (1)
  1. WARFARIN SODIUM [Suspect]
     Indication: PULMONARY EMBOLISM
     Route: 065

REACTIONS (5)
  - ANGLE CLOSURE GLAUCOMA [None]
  - CHOROIDAL HAEMORRHAGE [None]
  - CORNEAL OEDEMA [None]
  - EYE HAEMORRHAGE [None]
  - VISUAL FIELD DEFECT [None]
